FAERS Safety Report 23981780 (Version 1)
Quarter: 2024Q2

REPORT INFORMATION
  Report Type: Spontaneous
  Country: US (occurrence: None)
  Receive Date: 20240615
  Receipt Date: 20240615
  Transmission Date: 20240716
  Serious: Yes (Other)
  Sender: FDA-Public Use
  Company Number: None

PATIENT
  Age: 70 Year
  Sex: Female

DRUGS (1)
  1. QULIPTA [Suspect]
     Active Substance: ATOGEPANT
     Indication: Migraine
     Dosage: 1 TABLET DAILY ORAL
     Route: 048
     Dates: start: 20240605, end: 20240615

REACTIONS (7)
  - Abdominal pain [None]
  - Constipation [None]
  - Abdominal discomfort [None]
  - Abdominal distension [None]
  - Decreased appetite [None]
  - Malaise [None]
  - Therapy cessation [None]

NARRATIVE: CASE EVENT DATE: 20240610
